FAERS Safety Report 25330896 (Version 1)
Quarter: 2025Q2

REPORT INFORMATION
  Report Type: Spontaneous
  Country: US (occurrence: US)
  Receive Date: 20250519
  Receipt Date: 20250519
  Transmission Date: 20250717
  Serious: No
  Sender: MYLAN
  Company Number: US-MYLANLABS-2025M1039507

PATIENT
  Sex: Male

DRUGS (16)
  1. CELEBREX [Suspect]
     Active Substance: CELECOXIB
     Indication: Product used for unknown indication
  2. CELEBREX [Suspect]
     Active Substance: CELECOXIB
     Route: 065
  3. CELEBREX [Suspect]
     Active Substance: CELECOXIB
     Route: 065
  4. CELEBREX [Suspect]
     Active Substance: CELECOXIB
  5. CARBOPLATIN [Concomitant]
     Active Substance: CARBOPLATIN
  6. CARBOPLATIN [Concomitant]
     Active Substance: CARBOPLATIN
     Route: 065
  7. CARBOPLATIN [Concomitant]
     Active Substance: CARBOPLATIN
     Route: 065
  8. CARBOPLATIN [Concomitant]
     Active Substance: CARBOPLATIN
  9. ETOPOSIDE [Concomitant]
     Active Substance: ETOPOSIDE
  10. ETOPOSIDE [Concomitant]
     Active Substance: ETOPOSIDE
     Route: 065
  11. ETOPOSIDE [Concomitant]
     Active Substance: ETOPOSIDE
     Route: 065
  12. ETOPOSIDE [Concomitant]
     Active Substance: ETOPOSIDE
  13. TECENTRIQ [Concomitant]
     Active Substance: ATEZOLIZUMAB
  14. TECENTRIQ [Concomitant]
     Active Substance: ATEZOLIZUMAB
     Route: 065
  15. TECENTRIQ [Concomitant]
     Active Substance: ATEZOLIZUMAB
     Route: 065
  16. TECENTRIQ [Concomitant]
     Active Substance: ATEZOLIZUMAB

REACTIONS (1)
  - Disorientation [Unknown]
